FAERS Safety Report 9403573 (Version 1)
Quarter: 2013Q3

REPORT INFORMATION
  Report Type: Spontaneous
  Country: AU (occurrence: AU)
  Receive Date: 20130717
  Receipt Date: 20130717
  Transmission Date: 20140515
  Serious: Yes (Disabling)
  Sender: FDA-Public Use
  Company Number: AU-009507513-1307AUS005106

PATIENT
  Age: 61 Year
  Sex: Female
  Weight: 85 kg

DRUGS (4)
  1. ADRONAT [Suspect]
     Indication: OSTEOPOROSIS
     Dosage: 35 MG, QW, ON SUNDAY ON AN EMPTY STOMACH
     Route: 048
     Dates: start: 20130324, end: 20130407
  2. AVAPRO [Concomitant]
     Dosage: 75 MG
  3. CRESTOR [Concomitant]
     Dosage: 10 MG
  4. OSTELIN (ERGOCALCIFEROL) [Concomitant]

REACTIONS (2)
  - Activities of daily living impaired [Recovered/Resolved]
  - Myalgia [Recovered/Resolved]
